FAERS Safety Report 6498388-3 (Version None)
Quarter: 2009Q4

REPORT INFORMATION
  Report Type: 
  Country: None (occurrence: None)
  Receive Date: 20091127
  Receipt Date: 20090421
  Transmission Date: 20100525
  Serious: No
  Sender: FDA-Public Use
  Company Number: 284257

PATIENT
  Age: 69 Year
  Sex: Male

DRUGS (10)
  1. NOVOLOG [Suspect]
     Indication: INSULIN-REQUIRING TYPE 2 DIABETES MELLITUS
     Dosage: SLIDING SCALE, SUBCUTANEOUS
     Route: 058
  2. NOVOLOG [Suspect]
     Dosage: SUBCUTANEOUS
     Route: 058
  3. VITAMINC C (ASCORBIC ACID) [Concomitant]
  4. CRESTOR [Concomitant]
  5. FISH OIL (FISH OIL) [Concomitant]
  6. MULTIVITAMIN (ASCORBIC ACID, CALCIUM PANTOTHENATE, ERGOCALCIFEROL, NIC [Concomitant]
  7. ASPIRIN [Concomitant]
  8. TEVETEN [Concomitant]
  9. LANTUS [Concomitant]
  10. HUMALOG [Concomitant]

REACTIONS (2)
  - BLOOD GLUCOSE INCREASED [None]
  - PRODUCT QUALITY ISSUE [None]
